FAERS Safety Report 21697809 (Version 3)
Quarter: 2023Q1

REPORT INFORMATION
  Report Type: Spontaneous
  Country: US (occurrence: US)
  Receive Date: 20221208
  Receipt Date: 20230124
  Transmission Date: 20230418
  Serious: No
  Sender: FDA-Public Use
  Company Number: US-COSETTE-CP2022US000310

PATIENT
  Sex: Male

DRUGS (2)
  1. CLOMIPHENE CITRATE [Suspect]
     Active Substance: CLOMIPHENE CITRATE
     Indication: Product used for unknown indication
     Route: 065
  2. CLOMIPHENE CITRATE [Suspect]
     Active Substance: CLOMIPHENE CITRATE

REACTIONS (6)
  - Feeling abnormal [Unknown]
  - Tinnitus [Unknown]
  - Wrong technique in product usage process [Unknown]
  - Product formulation issue [Unknown]
  - Product compounding quality issue [Unknown]
  - Poor quality product administered [Unknown]
